FAERS Safety Report 7500726-7 (Version None)
Quarter: 2011Q2

REPORT INFORMATION
  Report Type: 
  Country: None (occurrence: None)
  Receive Date: 20110524
  Receipt Date: 20110516
  Transmission Date: 20111010
  Serious: Yes (Hospitalization, Disabling)
  Sender: FDA-Public Use
  Company Number: PHHY2011GB35256

PATIENT
  Age: 38 Year
  Sex: Male
  Weight: 90 kg

DRUGS (8)
  1. MYCOPHENOLATE MOFETIL [Suspect]
     Dosage: UNK
  2. BISOPROLOL FUMARATE [Concomitant]
     Dosage: 10 MG, UNK
  3. CELLCEPT [Concomitant]
     Indication: RENAL TRANSPLANT
     Dosage: 750 MG, BID
     Route: 048
  4. METHOTREXATE [Suspect]
     Dosage: 15 MG, QD
     Route: 048
     Dates: start: 20090814, end: 20090818
  5. LANSOPRAZOLE [Concomitant]
     Dosage: 30 MG, QD
  6. ATORVASTATIN [Concomitant]
     Dosage: 20 MG, QD
  7. PROGRAF [Concomitant]
     Indication: RENAL TRANSPLANT
     Dosage: 3 MG/DAY
     Route: 048
  8. RAMIPRIL [Concomitant]
     Dosage: 2.5 MG, BID

REACTIONS (3)
  - NEUTROPENIA [None]
  - MUCOSAL INFLAMMATION [None]
  - DRUG DISPENSING ERROR [None]
